FAERS Safety Report 4291258-0 (Version None)
Quarter: 2004Q1

REPORT INFORMATION
  Report Type: 
  Country: None (occurrence: None)
  Receive Date: 20040211
  Receipt Date: 20031121
  Transmission Date: 20041129
  Serious: No
  Sender: FDA-Public Use
  Company Number: US-GLAXOSMITHKLINE-A0440812A

PATIENT
  Age: 71 Year
  Sex: Female

DRUGS (15)
  1. PAXIL [Suspect]
     Indication: DEPRESSION
     Route: 048
     Dates: start: 20020101
  2. VIOXX [Concomitant]
  3. POTASSIUM [Concomitant]
  4. LASIX [Concomitant]
  5. METOLAZONE [Concomitant]
  6. LEVOTHYROXINE SODIUM [Concomitant]
  7. ACTOS [Concomitant]
  8. ZESTRIL [Concomitant]
  9. ALLEGRA [Concomitant]
  10. CIPRO [Concomitant]
  11. PROPOXYPHENE HCL [Concomitant]
  12. OSCAL [Concomitant]
  13. VITAMIN E [Concomitant]
  14. MULTI-VITAMIN [Concomitant]
  15. VITAMIN C [Concomitant]

REACTIONS (1)
  - GROIN PAIN [None]
